FAERS Safety Report 10472054 (Version 2)
Quarter: 2014Q4

REPORT INFORMATION
  Report Type: Spontaneous
  Country: IT (occurrence: IT)
  Receive Date: 20140924
  Receipt Date: 20141008
  Transmission Date: 20150528
  Serious: Yes (Hospitalization, Other)
  Sender: FDA-Public Use
  Company Number: IT-ROCHE-1465882

PATIENT
  Age: 70 Year
  Sex: Male

DRUGS (7)
  1. LUCENTIS [Suspect]
     Active Substance: RANIBIZUMAB
     Dosage: 2ND ADMINISTRATION
     Route: 050
     Dates: start: 20140805
  2. CLEXANE [Concomitant]
     Active Substance: ENOXAPARIN SODIUM
     Dosage: FOR ONE WEEK
     Route: 065
     Dates: start: 20140805
  3. ASPIRINETTA [Concomitant]
     Active Substance: ASPIRIN
     Indication: RETINAL VEIN OCCLUSION
  4. LISINOPRIL. [Concomitant]
     Active Substance: LISINOPRIL
     Indication: ESSENTIAL HYPERTENSION
  5. LUCENTIS [Suspect]
     Active Substance: RANIBIZUMAB
     Indication: MACULAR OEDEMA
     Route: 050
     Dates: start: 20140624
  6. DELTACORTENE [Concomitant]
     Active Substance: PREDNISONE
     Route: 065
  7. CLEXANE [Concomitant]
     Active Substance: ENOXAPARIN SODIUM
     Dosage: FOR 5 WEEKS
     Route: 065

REACTIONS (2)
  - Cerebral ischaemia [Recovered/Resolved with Sequelae]
  - Dysarthria [Recovered/Resolved with Sequelae]

NARRATIVE: CASE EVENT DATE: 20140820
